FAERS Safety Report 9166170 (Version 4)
Quarter: 2013Q4

REPORT INFORMATION
  Report Type: Spontaneous
  Country: FR (occurrence: FR)
  Receive Date: 20130315
  Receipt Date: 20131022
  Transmission Date: 20140711
  Serious: Yes (Hospitalization, Other)
  Sender: FDA-Public Use
  Company Number: FR-ASTRAZENECA-2013SE16584

PATIENT
  Age: 17252 Day
  Sex: Female
  Weight: 70 kg

DRUGS (11)
  1. XEROQUEL [Suspect]
     Indication: BIPOLAR DISORDER
     Route: 048
     Dates: start: 201205, end: 2013
  2. XEROQUEL [Suspect]
     Indication: DEPRESSION
     Route: 048
     Dates: start: 201205, end: 2013
  3. XEROQUEL [Suspect]
     Indication: BIPOLAR DISORDER
     Route: 048
     Dates: start: 20130304, end: 20130305
  4. XEROQUEL [Suspect]
     Indication: DEPRESSION
     Route: 048
     Dates: start: 20130304, end: 20130305
  5. BACLOFEN [Concomitant]
     Indication: ALCOHOLISM
     Route: 048
     Dates: start: 20130304
  6. ESPERAL [Concomitant]
     Indication: ALCOHOLISM
     Route: 048
     Dates: start: 20130304
  7. VALIUM [Concomitant]
     Indication: ALCOHOLISM
     Route: 048
     Dates: start: 20130304
  8. STILNOX [Concomitant]
     Indication: INSOMNIA
     Dosage: 1 DF PER DAY AS REQUIRED
     Route: 048
     Dates: start: 20130304
  9. THERALENE [Concomitant]
     Indication: INSOMNIA
     Dosage: 6 DF DAILY AS REQUIRED
  10. PRINCI B [Concomitant]
     Indication: ALCOHOLISM
     Dosage: 250+50 MG 3 DF DAILY
     Route: 048
     Dates: start: 20130304
  11. HORMONAL CONTRACEPTION [Concomitant]

REACTIONS (5)
  - Diabetes mellitus [Unknown]
  - Blood alkaline phosphatase increased [Unknown]
  - Alanine aminotransferase increased [Unknown]
  - Aspartate aminotransferase increased [Unknown]
  - Gamma-glutamyltransferase increased [Unknown]
